FAERS Safety Report 16074592 (Version 2)
Quarter: 2019Q3

REPORT INFORMATION
  Report Type: Spontaneous
  Country: US (occurrence: US)
  Receive Date: 20190314
  Receipt Date: 20190919
  Transmission Date: 20191004
  Serious: No
  Sender: FDA-Public Use
  Company Number: US-MYLANLABS-2019M1019564

PATIENT
  Age: 9 Decade
  Sex: Female
  Weight: 64 kg

DRUGS (1)
  1. NITROGLYCERIN TRANSDERMAL DELIVERY SYSTEM [Suspect]
     Active Substance: NITROGLYCERIN
     Indication: CHEST PAIN
     Dosage: UNK UNK, QD
     Route: 062

REACTIONS (3)
  - Application site pruritus [Unknown]
  - Product design issue [Unknown]
  - Application site erythema [Unknown]
